FAERS Safety Report 16213528 (Version 1)
Quarter: 2019Q2

REPORT INFORMATION
  Report Type: Spontaneous
  Country: VN (occurrence: VN)
  Receive Date: 20190418
  Receipt Date: 20190418
  Transmission Date: 20190711
  Serious: Yes (Death)
  Sender: FDA-Public Use
  Company Number: VN-ASTELLAS-2019US016214

PATIENT
  Age: 67 Year
  Sex: Male

DRUGS (1)
  1. ERLOTINIB [Suspect]
     Active Substance: ERLOTINIB
     Indication: NON-SMALL CELL LUNG CANCER STAGE IV
     Route: 048
     Dates: start: 2017, end: 2018

REACTIONS (2)
  - Death [Fatal]
  - Gene mutation identification test positive [Unknown]

NARRATIVE: CASE EVENT DATE: 20180205
